FAERS Safety Report 6150669 (Version 22)
Quarter: 2013Q2

REPORT INFORMATION
  Report Type: Spontaneous
  Country: US (occurrence: US)
  Receive Date: 20061020
  Receipt Date: 20130531
  Transmission Date: 20140414
  Serious: Yes (Hospitalization, Other)
  Sender: FDA-Public Use
  Company Number: US-ROCHE-466960

PATIENT
  Age: 30 Year
  Sex: Female
  Weight: 56.7 kg

DRUGS (2)
  1. ACCUTANE [Suspect]
     Indication: ACNE CYSTIC
     Route: 048
     Dates: start: 19950118, end: 199504
  2. ACCUTANE [Suspect]
     Route: 048
     Dates: start: 199509, end: 199511

REACTIONS (15)
  - Crohn^s disease [Unknown]
  - Colitis ulcerative [Unknown]
  - Large intestine perforation [Unknown]
  - Small intestinal obstruction [Recovered/Resolved]
  - Inflammatory bowel disease [Unknown]
  - Depression [Unknown]
  - Female genital tract fistula [Not Recovered/Not Resolved]
  - Perineal abscess [Not Recovered/Not Resolved]
  - Uterine dilation and curettage [Recovered/Resolved]
  - Iron deficiency anaemia [Unknown]
  - Cervical dysplasia [Recovered/Resolved]
  - Insomnia [Unknown]
  - Anxiety [Unknown]
  - Blood cholesterol increased [Unknown]
  - Dry skin [Unknown]
